FAERS Safety Report 10509916 (Version 1)
Quarter: 2014Q4

REPORT INFORMATION
  Report Type: Report from Study
  Country: US (occurrence: US)
  Receive Date: 20141010
  Receipt Date: 20141010
  Transmission Date: 20150528
  Serious: Yes (Other)
  Sender: FDA-Public Use
  Company Number: US-AMGEN INC.-USASL2014077202

PATIENT
  Age: 53 Year
  Sex: Female

DRUGS (2)
  1. LYRICA [Concomitant]
     Active Substance: PREGABALIN
  2. ENBREL [Suspect]
     Active Substance: ETANERCEPT
     Indication: RHEUMATOID ARTHRITIS
     Dosage: UNK UNK, QWK
     Route: 065
     Dates: start: 20131201, end: 2014

REACTIONS (2)
  - Rheumatoid arthritis [Unknown]
  - Therapeutic response decreased [Unknown]
